FAERS Safety Report 5963401-6 (Version None)
Quarter: 2008Q4

REPORT INFORMATION
  Report Type: 
  Country: None (occurrence: None)
  Receive Date: 20081121
  Receipt Date: 20081121
  Transmission Date: 20090506
  Serious: No
  Sender: FDA-Public Use
  Company Number: None

PATIENT
  Age: 50 Year
  Sex: Female
  Weight: 97.5234 kg

DRUGS (1)
  1. LEVAQUIN [Suspect]
     Indication: SINUSITIS
     Dosage: 1 TABLET ONCE A DATE PO
     Route: 048
     Dates: start: 20081113, end: 20081115

REACTIONS (3)
  - INSOMNIA [None]
  - PRURITUS [None]
  - SUICIDAL IDEATION [None]
